FAERS Safety Report 11327154 (Version 2)
Quarter: 2015Q3

REPORT INFORMATION
  Report Type: Report from Study
  Country: US (occurrence: US)
  Receive Date: 20150731
  Receipt Date: 20150828
  Transmission Date: 20151125
  Serious: Yes (Other)
  Sender: FDA-Public Use
  Company Number: US-AMGEN-USASL2015076243

PATIENT
  Age: 10 Year
  Sex: Female

DRUGS (1)
  1. ENBREL [Suspect]
     Active Substance: ETANERCEPT
     Indication: JUVENILE IDIOPATHIC ARTHRITIS
     Dosage: 25 MG (0.6 ML), 2 TIMES/WK
     Route: 065
     Dates: start: 20150706, end: 20150824

REACTIONS (10)
  - Drug effect incomplete [Unknown]
  - Injection site pruritus [Not Recovered/Not Resolved]
  - Joint lock [Unknown]
  - Abasia [Unknown]
  - Injection site reaction [Not Recovered/Not Resolved]
  - Injection site erythema [Not Recovered/Not Resolved]
  - Arthralgia [Not Recovered/Not Resolved]
  - Injection site warmth [Not Recovered/Not Resolved]
  - Injection site induration [Not Recovered/Not Resolved]
  - Arthropathy [Unknown]

NARRATIVE: CASE EVENT DATE: 2015
